FAERS Safety Report 21145347 (Version 1)
Quarter: 2022Q3

REPORT INFORMATION
  Report Type: Report from Study
  Country: DE (occurrence: DE)
  Receive Date: 20220729
  Receipt Date: 20220729
  Transmission Date: 20221027
  Serious: Yes (Other)
  Sender: FDA-Public Use
  Company Number: DE-EMA-DD-20201118-kumarvn_p-132943

PATIENT
  Sex: Female

DRUGS (5)
  1. ANASTROZOLE [Suspect]
     Active Substance: ANASTROZOLE
     Indication: Breast cancer metastatic
     Dosage: 1 MILLIGRAM DAILY;
     Route: 048
     Dates: start: 20200725
  2. ANASTROZOLE [Suspect]
     Active Substance: ANASTROZOLE
     Indication: Breast cancer
  3. KISQALI [Suspect]
     Active Substance: RIBOCICLIB
     Indication: Breast cancer metastatic
     Dosage: 600 MILLIGRAM DAILY; UNIT DOSE : 600 MG, QD, ADMINISTRATION SCHEME 21 DAYS INTAKE, 7 DAYS PAUSE
     Route: 048
     Dates: start: 20200725, end: 20200805
  4. KISQALI [Suspect]
     Active Substance: RIBOCICLIB
     Dosage: 400 MILLIGRAM DAILY; 400 MG, QD (21 DAYS INTAKE, 7 DAYS PAUSE)
     Dates: start: 20201216
  5. KISQALI [Suspect]
     Active Substance: RIBOCICLIB
     Dosage: 400 MILLIGRAM DAILY; 400 MG, QD (21 DAYS INTAKE, 7 DAYS PAUSE)
     Dates: start: 20200918, end: 20201203

REACTIONS (10)
  - Fatigue [Recovering/Resolving]
  - Neutropenia [Recovered/Resolved]
  - Myalgia [Not Recovered/Not Resolved]
  - Bone pain [Not Recovered/Not Resolved]
  - Arthralgia [Not Recovered/Not Resolved]
  - Constipation [Not Recovered/Not Resolved]
  - Depression [Not Recovered/Not Resolved]
  - Dry skin [Not Recovered/Not Resolved]
  - Alopecia [Not Recovered/Not Resolved]
  - Eastern Cooperative Oncology Group performance status worsened [Not Recovered/Not Resolved]

NARRATIVE: CASE EVENT DATE: 20200914
